FAERS Safety Report 6885902-9 (Version None)
Quarter: 2010Q3

REPORT INFORMATION
  Report Type: 
  Country: None (occurrence: None)
  Receive Date: 20100729
  Receipt Date: 20090226
  Transmission Date: 20110219
  Serious: No
  Sender: FDA-Public Use
  Company Number: US-PFIZER INC-2009176812

PATIENT
  Sex: Male

DRUGS (1)
  1. CELEBREX [Suspect]
     Indication: INFLAMMATION
     Dosage: 100 MG, 1X/DAY
     Route: 048
     Dates: start: 20090214, end: 20090201

REACTIONS (2)
  - MUSCLE TIGHTNESS [None]
  - PRURITUS [None]
